FAERS Safety Report 10003998 (Version 1)
Quarter: 2014Q1

REPORT INFORMATION
  Report Type: Spontaneous
  Country: US (occurrence: US)
  Receive Date: 20140312
  Receipt Date: 20140312
  Transmission Date: 20141002
  Serious: No
  Sender: FDA-Public Use
  Company Number: US-ABBVIE-13P-163-1141994-00

PATIENT
  Sex: Female

DRUGS (15)
  1. AMITRIPTYLINE [Concomitant]
     Indication: DIABETIC NEUROPATHY
     Dosage: OFF AND ON MEDICATION
     Dates: start: 201108
  2. CYMBALTA [Concomitant]
     Indication: DEPRESSION
     Dates: start: 201210
  3. XIFAXAN [Concomitant]
     Indication: HEPATIC CIRRHOSIS
     Dates: start: 201302
  4. DILTIAZEM [Concomitant]
     Indication: HYPERTENSION
     Dates: start: 200908
  5. LANTUS [Concomitant]
     Indication: DIABETES MELLITUS
     Dates: start: 200806
  6. B12 [Concomitant]
     Indication: VITAMIN B12 DEFICIENCY
     Dates: start: 201002
  7. B12 [Concomitant]
     Indication: PERNICIOUS ANAEMIA
  8. METFORMIN [Concomitant]
     Indication: DIABETES MELLITUS
     Dates: start: 2007
  9. KCL [Concomitant]
     Indication: BLOOD POTASSIUM DECREASED
     Dates: start: 2008
  10. HUMALOG [Concomitant]
     Indication: DIABETES MELLITUS
     Dates: start: 201203
  11. OMEPRAZOLE [Concomitant]
     Indication: GASTROOESOPHAGEAL REFLUX DISEASE
     Dates: start: 201010
  12. DEPAKOTE [Suspect]
     Indication: PRODUCT USED FOR UNKNOWN INDICATION
  13. GABAPENTIN [Suspect]
     Indication: DIABETIC NEUROPATHY
     Route: 048
     Dates: start: 20091217
  14. LASIX [Concomitant]
     Indication: OEDEMA
     Dates: start: 2007
  15. SYNTHROID [Concomitant]
     Indication: HYPOTHYROIDISM
     Dates: start: 201107

REACTIONS (11)
  - Feeling abnormal [Unknown]
  - Pneumonia [Unknown]
  - Suicidal ideation [Unknown]
  - Psychotic disorder [Unknown]
  - Unevaluable event [Unknown]
  - Unevaluable event [Unknown]
  - Malaise [Unknown]
  - Drug level increased [Unknown]
  - Asthenia [Unknown]
  - Apathy [Unknown]
  - Pain [Unknown]
